FAERS Safety Report 23833000 (Version 1)
Quarter: 2024Q2

REPORT INFORMATION
  Report Type: Spontaneous
  Country: US (occurrence: None)
  Receive Date: 20240507
  Receipt Date: 20240507
  Transmission Date: 20240715
  Serious: Yes (Hospitalization)
  Sender: FDA-Public Use
  Company Number: None

PATIENT
  Age: 67 Year
  Sex: Male
  Weight: 103 kg

DRUGS (1)
  1. SUCRALFATE [Suspect]
     Active Substance: SUCRALFATE
     Indication: Ulcer
     Dosage: OTHER FREQUENCY : QID BEFORE MEALS;?
     Route: 048
     Dates: start: 20220613, end: 20220818

REACTIONS (4)
  - Seizure [None]
  - Abdominal pain upper [None]
  - Weight decreased [None]
  - Headache [None]

NARRATIVE: CASE EVENT DATE: 20220829
